FAERS Safety Report 7416647-4 (Version None)
Quarter: 2011Q2

REPORT INFORMATION
  Report Type: 
  Country: None (occurrence: None)
  Receive Date: 20110415
  Receipt Date: 20110324
  Transmission Date: 20111010
  Serious: No
  Sender: FDA-Public Use
  Company Number: US-BIOGENIDEC-2011BI004067

PATIENT
  Age: 53 Year
  Sex: Female

DRUGS (2)
  1. STOOL SOFTENER [Concomitant]
     Indication: CONSTIPATION
     Dates: start: 20050101
  2. TYSABRI [Suspect]
     Indication: MULTIPLE SCLEROSIS
     Route: 042
     Dates: start: 20090617

REACTIONS (3)
  - MUSCLE SPASTICITY [None]
  - IMPLANT SITE CALCIFICATION [None]
  - ELECTROCARDIOGRAM ABNORMAL [None]
